FAERS Safety Report 9893515 (Version 1)
Quarter: 2014Q1

REPORT INFORMATION
  Report Type: Spontaneous
  Country: IT (occurrence: IT)
  Receive Date: 20140213
  Receipt Date: 20140213
  Transmission Date: 20141002
  Serious: Yes (Death, Other)
  Sender: FDA-Public Use
  Company Number: PHHY2014IT016904

PATIENT
  Sex: Male

DRUGS (8)
  1. CICLOSPORIN [Suspect]
     Indication: PROPHYLAXIS AGAINST GRAFT VERSUS HOST DISEASE
  2. METHYLPREDNISOLONE [Suspect]
     Indication: PROPHYLAXIS AGAINST GRAFT VERSUS HOST DISEASE
     Dosage: 2.4 MG/KG,
  3. ANTITHYMOCYTE IMMUNOGLOBULIN [Suspect]
     Indication: PROPHYLAXIS AGAINST GRAFT VERSUS HOST DISEASE
     Dosage: 1 G/KG, X14
     Route: 042
  4. VINCRISTINE [Suspect]
     Indication: EVANS SYNDROME
  5. CYCLOPHOSPHAMIDE [Suspect]
     Indication: EVANS SYNDROME
  6. IMMUNOGLOBULINS [Suspect]
     Indication: EVANS SYNDROME
     Dosage: 1 G/KG, UNK
  7. RITUXIMAB [Suspect]
     Indication: EVANS SYNDROME
  8. BUSULFAN [Concomitant]

REACTIONS (7)
  - Multi-organ failure [Fatal]
  - Anaemia [Fatal]
  - Haemorrhage [Fatal]
  - Cytomegalovirus infection [Unknown]
  - Acute graft versus host disease [Unknown]
  - Evans syndrome [Unknown]
  - Therapeutic response decreased [Unknown]
